FAERS Safety Report 21308969 (Version 1)
Quarter: 2022Q3

REPORT INFORMATION
  Report Type: Spontaneous
  Country: CN (occurrence: CN)
  Receive Date: 20220908
  Receipt Date: 20220908
  Transmission Date: 20221027
  Serious: Yes (Other)
  Sender: FDA-Public Use
  Company Number: CN-PFIZER INC-PV202200058418

PATIENT
  Age: 13 Month
  Sex: Male
  Weight: 10 kg

DRUGS (2)
  1. ZITHROMAX [Suspect]
     Active Substance: AZITHROMYCIN DIHYDRATE
     Indication: Anti-infective therapy
     Dosage: 10 MG/KG, 1X/DAY
     Route: 048
     Dates: start: 20220629, end: 20220629
  2. TAN RE QING [Concomitant]
     Indication: Productive cough
     Dosage: UNK

REACTIONS (3)
  - Drug eruption [Recovering/Resolving]
  - Papule [Recovering/Resolving]
  - Pruritus [Recovering/Resolving]

NARRATIVE: CASE EVENT DATE: 20220629
